FAERS Safety Report 8277842-8 (Version None)
Quarter: 2012Q2

REPORT INFORMATION
  Report Type: 
  Country: None (occurrence: None)
  Receive Date: 20120412
  Receipt Date: 20120409
  Transmission Date: 20120825
  Serious: Yes (Other)
  Sender: FDA-Public Use
  Company Number: US-PFIZER INC-2012089226

PATIENT
  Sex: Female
  Weight: 79 kg

DRUGS (3)
  1. OMEPRAZOLE [Interacting]
     Indication: GASTROOESOPHAGEAL REFLUX DISEASE
     Dosage: 20 MG, DAILY
  2. METFORMIN HCL [Interacting]
     Indication: DIABETES MELLITUS
     Dosage: 500 MG, DAILY
  3. LIPITOR [Suspect]
     Indication: BLOOD CHOLESTEROL INCREASED
     Dosage: 20 MG, DAILY
     Route: 048

REACTIONS (5)
  - PAIN [None]
  - DRUG INTERACTION [None]
  - MYALGIA [None]
  - JOINT INJURY [None]
  - TIBIA FRACTURE [None]
